FAERS Safety Report 23689521 (Version 1)
Quarter: 2024Q1

REPORT INFORMATION
  Report Type: Spontaneous
  Country: ES (occurrence: ES)
  Receive Date: 20240331
  Receipt Date: 20240331
  Transmission Date: 20240410
  Serious: Yes (Other)
  Sender: FDA-Public Use
  Company Number: ES-STERISCIENCE B.V.-2024-ST-000337

PATIENT
  Age: 36 Year
  Sex: Female

DRUGS (4)
  1. MYCOPHENOLATE MOFETIL [Suspect]
     Active Substance: MYCOPHENOLATE MOFETIL
     Indication: Subacute cutaneous lupus erythematosus
     Dosage: 2000 MILLIGRAM, QD
     Route: 065
  2. HYDROXYCHLOROQUINE [Suspect]
     Active Substance: HYDROXYCHLOROQUINE
     Indication: Subacute cutaneous lupus erythematosus
     Dosage: 200?400 MG/DAY
     Route: 065
  3. QUINACRINE [Suspect]
     Active Substance: QUINACRINE
     Indication: Subacute cutaneous lupus erythematosus
     Dosage: 100 MILLIGRAM, QD
     Route: 065
  4. METHOTREXATE [Suspect]
     Active Substance: METHOTREXATE
     Indication: Subacute cutaneous lupus erythematosus
     Dosage: 15 MILLIGRAM, QW
     Route: 065

REACTIONS (2)
  - Treatment failure [Unknown]
  - Off label use [Unknown]
